FAERS Safety Report 4300426-0 (Version None)
Quarter: 2004Q1

REPORT INFORMATION
  Report Type: 
  Country: None (occurrence: None)
  Receive Date: 20040218
  Receipt Date: 20040129
  Transmission Date: 20041129
  Serious: Yes (Other)
  Sender: FDA-Public Use
  Company Number: US_980401764

PATIENT
  Age: 72 Year
  Sex: Female
  Weight: 81 kg

DRUGS (13)
  1. HUMALOG [Suspect]
     Indication: DIABETES MELLITUS
     Dosage: 16 U/4 DAY
     Dates: start: 19980320
  2. HUMULIN N [Suspect]
     Indication: DIABETES MELLITUS
     Dosage: 7 U/4 DAY
  3. HUMULIN R [Suspect]
     Indication: DIABETES MELLITUS
     Dosage: 16 U/DAY
  4. DULCOLAX [Concomitant]
  5. ACETYLSALICYLIC ACID SRT [Concomitant]
  6. PRINIVIL [Concomitant]
  7. POSICOR [Concomitant]
  8. LIPITOR [Concomitant]
  9. SOMINEX [Concomitant]
  10. CARDIZEM [Concomitant]
  11. LASIX [Concomitant]
  12. COREG [Concomitant]
  13. AVAPRO [Concomitant]

REACTIONS (3)
  - DIABETES MELLITUS INADEQUATE CONTROL [None]
  - DRUG EFFECT DECREASED [None]
  - RENAL FAILURE [None]
